FAERS Safety Report 6504295-X (Version None)
Quarter: 2009Q4

REPORT INFORMATION
  Report Type: 
  Country: None (occurrence: None)
  Receive Date: 20091217
  Receipt Date: 20091120
  Transmission Date: 20100525
  Serious: Yes (Hospitalization)
  Sender: FDA-Public Use
  Company Number: GB-BRISTOL-MYERS SQUIBB COMPANY-12513214

PATIENT
  Age: 67 Year
  Sex: Male
  Weight: 91 kg

DRUGS (8)
  1. PLACEBO [Suspect]
     Indication: HYPERTENSION
     Route: 048
     Dates: start: 20031128
  2. WARFARIN SODIUM [Suspect]
     Indication: PROPHYLAXIS
     Route: 048
     Dates: start: 20031129
  3. AMLODIPINE [Concomitant]
  4. AMIODARONE HCL [Concomitant]
  5. ALFUZOSIN HCL [Concomitant]
  6. ATORVASTATIN CALCIUM [Concomitant]
  7. CIPROXIN [Concomitant]
  8. FINASTERIDE [Concomitant]

REACTIONS (2)
  - BIOPSY PROSTATE [None]
  - HYPERTROPHY [None]
